FAERS Safety Report 9483066 (Version 1)
Quarter: 2013Q3

REPORT INFORMATION
  Report Type: Spontaneous
  Country: US (occurrence: US)
  Receive Date: 20130828
  Receipt Date: 20130828
  Transmission Date: 20140515
  Serious: No
  Sender: FDA-Public Use
  Company Number: US-MUTUAL PHARMACEUTICAL COMPANY, INC.-DXCY20120016

PATIENT
  Age: 69 Year
  Sex: Female
  Weight: 81.72 kg

DRUGS (4)
  1. DOXYCYCLINE TABLETS 100 MG [Suspect]
     Indication: MALARIA PROPHYLAXIS
     Route: 048
     Dates: start: 201210, end: 2012
  2. DOXYCYCLINE TABLETS 100 MG [Suspect]
     Route: 048
     Dates: start: 2012
  3. SYNTHROID [Concomitant]
     Indication: THYROID HORMONE REPLACEMENT THERAPY
     Route: 048
  4. HYDROXYCHLOROQUINE [Concomitant]
     Indication: SYSTEMIC LUPUS ERYTHEMATOSUS
     Route: 048

REACTIONS (3)
  - Abdominal pain [Not Recovered/Not Resolved]
  - Diarrhoea [Not Recovered/Not Resolved]
  - Nausea [Not Recovered/Not Resolved]
